FAERS Safety Report 4408832-0 (Version None)
Quarter: 2004Q3

REPORT INFORMATION
  Report Type: 
  Country: None (occurrence: None)
  Receive Date: 20040727
  Receipt Date: 20040614
  Transmission Date: 20050211
  Serious: Yes (Death, Life-Threatening, Hospitalization, Other)
  Sender: FDA-Public Use
  Company Number: FR-BRISTOL-MYERS SQUIBB COMPANY-12626305

PATIENT
  Age: 58 Year
  Sex: Male
  Weight: 73 kg

DRUGS (7)
  1. CYCLOPHOSPHAMIDE [Suspect]
     Indication: CHRONIC LYMPHOCYTIC LEUKAEMIA
     Dosage: CYCLES 1-6 DAYS 1-3 EVERY 28 DAYS
     Route: 042
     Dates: start: 20040211, end: 20040507
  2. FLUDARABINE PHOSPHATE [Suspect]
     Indication: CHRONIC LYMPHOCYTIC LEUKAEMIA
     Dosage: CYCLES 1-6 DAYS 1-3 EVERY 28 DAYS
     Route: 042
     Dates: start: 20040211, end: 20040507
  3. BACTRIM [Concomitant]
     Dates: start: 20040126, end: 20040530
  4. LEDERFOLINE [Concomitant]
     Dates: start: 20040126, end: 20040530
  5. CO-TRIMOXAZOL [Concomitant]
     Dates: start: 20040211, end: 20040531
  6. LEUCOVORIN [Concomitant]
     Dates: start: 20040211, end: 20040531
  7. VALACYCLOVIR HCL [Concomitant]
     Dates: start: 20040211, end: 20040531

REACTIONS (6)
  - ANAEMIA HAEMOLYTIC AUTOIMMUNE [None]
  - CARDIO-RESPIRATORY ARREST [None]
  - LUNG DISORDER [None]
  - MULTI-ORGAN FAILURE [None]
  - MYOCARDIAL INFARCTION [None]
  - VOMITING [None]
